FAERS Safety Report 4395110-1 (Version None)
Quarter: 2004Q2

REPORT INFORMATION
  Report Type: 
  Country: None (occurrence: None)
  Receive Date: 20040621
  Receipt Date: 20020102
  Transmission Date: 20050107
  Serious: Yes (Other)
  Sender: FDA-Public Use
  Company Number: KII-2002-0009389

PATIENT
  Sex: Male

DRUGS (3)
  1. OXYCONTIN [Suspect]
     Indication: PAIN
     Dosage: 20 MG, Q12H,
  2. METHOTREXATE [Concomitant]
  3. REMICADE [Concomitant]

REACTIONS (3)
  - BONE PAIN [None]
  - DRUG DEPENDENCE [None]
  - MEDICATION ERROR [None]
